FAERS Safety Report 5933581-7 (Version None)
Quarter: 2008Q4

REPORT INFORMATION
  Report Type: 
  Country: None (occurrence: None)
  Receive Date: 20081029
  Receipt Date: 20081002
  Transmission Date: 20090506
  Serious: Yes (Hospitalization)
  Sender: FDA-Public Use
  Company Number: CR-JNJFOC-20081001294

PATIENT
  Age: 66 Year
  Sex: Female
  Weight: 50 kg

DRUGS (6)
  1. DURAGESIC-100 [Suspect]
     Route: 062
  2. DURAGESIC-100 [Suspect]
     Route: 062
  3. DURAGESIC-100 [Suspect]
     Indication: PAIN MANAGEMENT
     Dosage: 12.5 MCG/HR
     Route: 062
  4. CELEBRA [Concomitant]
     Indication: PAIN
     Dosage: 200 MG/TWID/ORAL
     Route: 048
  5. RADIOTHERAPY [Concomitant]
     Indication: PANCREATIC CARCINOMA
     Dosage: 200 MG/TWID/ORAL
     Route: 065
     Dates: start: 20080915
  6. CHEMOTHERAPY [Concomitant]
     Indication: PANCREATIC CARCINOMA
     Dosage: 200 MG/TWID/ORAL
     Route: 065
     Dates: start: 20080915

REACTIONS (1)
  - INTESTINAL OBSTRUCTION [None]
